FAERS Safety Report 13486376 (Version 4)
Quarter: 2017Q2

REPORT INFORMATION
  Report Type: Report from Study
  Country: None (occurrence: US)
  Receive Date: 20170426
  Receipt Date: 20170615
  Transmission Date: 20170830
  Serious: Yes (Hospitalization)
  Sender: FDA-Public Use
  Company Number: US-ABBVIE-17P-163-1942700-00

PATIENT
  Age: 36 Year
  Sex: Male

DRUGS (14)
  1. BACTRIM [Concomitant]
     Active Substance: SULFAMETHOXAZOLE\TRIMETHOPRIM
     Indication: ANTIBIOTIC THERAPY
     Dosage: 800-160MG MONDAY, WEDNESDAY, FRIDAY
     Route: 048
  2. CHEMOTHERAPY [Concomitant]
     Active Substance: UNSPECIFIED INGREDIENT
     Indication: NAUSEA
     Route: 042
     Dates: start: 20170417, end: 20170421
  3. ZOFRAN [Concomitant]
     Active Substance: ONDANSETRON HYDROCHLORIDE
     Indication: NAUSEA
     Dosage: AS NEEDED
     Route: 048
  4. ACYCLOVIR. [Concomitant]
     Active Substance: ACYCLOVIR
     Indication: INFECTION PROPHYLAXIS
     Route: 048
  5. CHEMOTHERAPY [Concomitant]
     Active Substance: UNSPECIFIED INGREDIENT
     Indication: CHRONIC LYMPHOCYTIC LEUKAEMIA
     Route: 042
     Dates: start: 20170320, end: 20170324
  6. VENCLEXTA [Suspect]
     Active Substance: VENETOCLAX
     Dosage: X7 DAYS
     Route: 048
     Dates: start: 20170421, end: 20170427
  7. MAGNESIUM [Concomitant]
     Active Substance: MAGNESIUM
     Indication: PRODUCT USED FOR UNKNOWN INDICATION
     Route: 048
  8. CIPROFLOXACIN. [Concomitant]
     Active Substance: CIPROFLOXACIN
     Indication: ANTIBIOTIC THERAPY
     Route: 048
  9. VENCLEXTA [Suspect]
     Active Substance: VENETOCLAX
     Dosage: X7 DAYS
     Route: 048
     Dates: start: 20170413, end: 20170419
  10. FLUCONAZOLE. [Concomitant]
     Active Substance: FLUCONAZOLE
     Indication: INFECTION
     Route: 048
  11. VENCLEXTA [Suspect]
     Active Substance: VENETOCLAX
     Indication: CHRONIC LYMPHOCYTIC LEUKAEMIA
     Dosage: X7 DAYS
     Route: 048
     Dates: start: 20160330, end: 20170405
  12. VENCLEXTA [Suspect]
     Active Substance: VENETOCLAX
     Dosage: X7 DAYS
     Route: 048
     Dates: start: 20170406, end: 20170412
  13. VENCLEXTA [Suspect]
     Active Substance: VENETOCLAX
     Dosage: X5 DAYS
     Route: 048
     Dates: start: 20170428, end: 20170502
  14. ZOFRAN [Concomitant]
     Active Substance: ONDANSETRON HYDROCHLORIDE
     Indication: VOMITING

REACTIONS (8)
  - Hypophagia [Not Recovered/Not Resolved]
  - Fatigue [Not Recovered/Not Resolved]
  - Diarrhoea [Unknown]
  - Malaise [Unknown]
  - Dermal cyst [Unknown]
  - Platelet count decreased [Unknown]
  - Malaise [Unknown]
  - Feeling abnormal [Unknown]

NARRATIVE: CASE EVENT DATE: 20170410
